FAERS Safety Report 25707356 (Version 1)
Quarter: 2025Q3

REPORT INFORMATION
  Report Type: Spontaneous
  Country: US (occurrence: US)
  Receive Date: 20250820
  Receipt Date: 20250820
  Transmission Date: 20251020
  Serious: No
  Sender: CIPLA
  Company Number: US-CIPLA LTD.-2025US01793

PATIENT

DRUGS (2)
  1. SAJAZIR [Suspect]
     Active Substance: ICATIBANT ACETATE
     Indication: Hereditary angioedema
     Route: 058
  2. SAJAZIR [Suspect]
     Active Substance: ICATIBANT ACETATE
     Indication: Peripheral swelling
     Route: 058
     Dates: start: 20250131

REACTIONS (2)
  - Hereditary angioedema with C1 esterase inhibitor deficiency [Not Recovered/Not Resolved]
  - Off label use [Unknown]

NARRATIVE: CASE EVENT DATE: 20250131
